FAERS Safety Report 25553572 (Version 1)
Quarter: 2025Q3

REPORT INFORMATION
  Report Type: Spontaneous
  Country: US (occurrence: US)
  Receive Date: 20250715
  Receipt Date: 20250715
  Transmission Date: 20251020
  Serious: No
  Sender: BIOGEN
  Company Number: US-BIOGEN-2025BI01316799

PATIENT
  Age: 21 Year
  Sex: Female

DRUGS (2)
  1. ZURZUVAE [Suspect]
     Active Substance: ZURANOLONE
     Indication: Brief psychotic disorder, with postpartum onset
     Route: 050
  2. ZURZUVAE [Suspect]
     Active Substance: ZURANOLONE
     Route: 050

REACTIONS (2)
  - Sedation [Unknown]
  - Off label use [Recovered/Resolved]
